FAERS Safety Report 25775641 (Version 1)
Quarter: 2025Q3

REPORT INFORMATION
  Report Type: Spontaneous
  Country: US (occurrence: US)
  Receive Date: 20250909
  Receipt Date: 20250909
  Transmission Date: 20251021
  Serious: Yes (Other)
  Sender: PIRAMAL
  Company Number: US-PIRAMAL CRITICAL CARE LIMITED-2025-PPL-000497

PATIENT

DRUGS (10)
  1. ISOFLURANE [Suspect]
     Active Substance: ISOFLURANE
     Indication: Maintenance of anaesthesia
  2. ROCURONIUM [Suspect]
     Active Substance: ROCURONIUM BROMIDE
     Indication: Induction of anaesthesia
  3. MIDAZOLAM [Suspect]
     Active Substance: MIDAZOLAM
     Indication: Premedication
  4. FENTANYL [Suspect]
     Active Substance: FENTANYL
     Indication: Induction of anaesthesia
  5. PROPOFOL [Suspect]
     Active Substance: PROPOFOL
     Indication: Induction of anaesthesia
  6. PROPOFOL [Suspect]
     Active Substance: PROPOFOL
  7. PROPOFOL [Suspect]
     Active Substance: PROPOFOL
  8. METHADONE [Concomitant]
     Active Substance: METHADONE HYDROCHLORIDE
     Indication: Analgesic therapy
  9. HYDROMORPHONE [Concomitant]
     Active Substance: HYDROMORPHONE
     Indication: Analgesic therapy
  10. MEPERIDINE [Concomitant]
     Active Substance: MEPERIDINE
     Indication: Chills

REACTIONS (1)
  - Hyperthermia malignant [Recovered/Resolved]
